FAERS Safety Report 7825635-5 (Version None)
Quarter: 2011Q4

REPORT INFORMATION
  Report Type: 
  Country: None (occurrence: None)
  Receive Date: 20111019
  Receipt Date: 20111019
  Transmission Date: 20120403
  Serious: Yes (Other)
  Sender: FDA-Public Use
  Company Number: US-CEPHALON-2009029238

PATIENT
  Sex: Female
  Weight: 98 kg

DRUGS (2)
  1. ACTIQ [Suspect]
     Indication: FIBROMYALGIA
     Route: 002
     Dates: start: 20070101, end: 20090301
  2. NORCO [Concomitant]
     Dates: end: 20090401

REACTIONS (9)
  - SUICIDAL IDEATION [None]
  - CONFUSIONAL STATE [None]
  - ENAMEL ANOMALY [None]
  - SOMNOLENCE [None]
  - MEMORY IMPAIRMENT [None]
  - TOOTH LOSS [None]
  - POOR DENTAL CONDITION [None]
  - TEETH BRITTLE [None]
  - DENTAL CARIES [None]
